FAERS Safety Report 11146739 (Version 3)
Quarter: 2015Q3

REPORT INFORMATION
  Report Type: Spontaneous
  Country: JP (occurrence: JP)
  Receive Date: 20150528
  Receipt Date: 20150702
  Transmission Date: 20151125
  Serious: Yes (Hospitalization)
  Sender: FDA-Public Use
  Company Number: PHJP2015JP003855

PATIENT
  Age: 2 Year
  Sex: Female
  Weight: 14 kg

DRUGS (1)
  1. TEGRETOL [Suspect]
     Active Substance: CARBAMAZEPINE
     Indication: EPILEPSY
     Dosage: 50 MG, BID
     Route: 048
     Dates: start: 20141028, end: 20150312

REACTIONS (3)
  - Epistaxis [Unknown]
  - Immune thrombocytopenic purpura [Unknown]
  - Purpura [Not Recovered/Not Resolved]

NARRATIVE: CASE EVENT DATE: 20150305
